FAERS Safety Report 5913953-7 (Version None)
Quarter: 2008Q4

REPORT INFORMATION
  Report Type: 
  Country: None (occurrence: None)
  Receive Date: 20081009
  Receipt Date: 20081003
  Transmission Date: 20090506
  Serious: Yes (Life-Threatening, Hospitalization, Disabling, Other)
  Sender: FDA-Public Use
  Company Number: US-MERCK-0805USA00484

PATIENT
  Age: 73 Year
  Sex: Female
  Weight: 92 kg

DRUGS (19)
  1. FOSAMAX [Suspect]
     Indication: OSTEOPOROSIS
     Route: 048
     Dates: start: 20030801, end: 20070101
  2. LIPITOR [Concomitant]
     Route: 065
  3. COUMADIN [Concomitant]
     Indication: ARRHYTHMIA SUPRAVENTRICULAR
     Route: 065
  4. ACTOS [Concomitant]
     Route: 065
  5. WELLBUTRIN [Concomitant]
     Route: 065
  6. LASIX [Concomitant]
     Route: 065
  7. POTASSIUM (UNSPECIFIED) [Concomitant]
     Route: 065
  8. LOPRESSOR [Concomitant]
     Route: 065
  9. MECLIZINE [Concomitant]
     Route: 065
  10. PREVACID [Concomitant]
     Route: 065
  11. TEMAZEPAM [Concomitant]
     Route: 065
  12. ACIPHEX [Concomitant]
     Route: 065
  13. NORTRIPTYLINE [Concomitant]
     Route: 065
  14. TOPAMAX [Concomitant]
     Route: 065
  15. NEURONTIN [Concomitant]
     Route: 065
  16. IRON (UNSPECIFIED) [Concomitant]
     Route: 065
  17. VITAMINS (UNSPECIFIED) [Concomitant]
     Route: 065
  18. CALCIUM (UNSPECIFIED) [Concomitant]
     Route: 065
  19. FORTEO [Suspect]
     Route: 065
     Dates: start: 20070125, end: 20080430

REACTIONS (5)
  - BONE NEOPLASM MALIGNANT [None]
  - LUNG NEOPLASM MALIGNANT [None]
  - METASTASES TO LYMPH NODES [None]
  - OROPHARYNGEAL CANCER STAGE UNSPECIFIED [None]
  - THYROID NEOPLASM [None]
